FAERS Safety Report 8576082-2 (Version None)
Quarter: 2012Q3

REPORT INFORMATION
  Report Type: 
  Country: None (occurrence: None)
  Receive Date: 20120807
  Receipt Date: 20120727
  Transmission Date: 20120928
  Serious: Yes (Other)
  Sender: FDA-Public Use
  Company Number: GB-TEVA-351751ISR

PATIENT
  Age: 31 Year
  Sex: Male
  Weight: 55.45 kg

DRUGS (21)
  1. LANSOPRAZOLE [Concomitant]
  2. TRANEXAMIC ACID [Concomitant]
  3. TEICOPLANIN [Concomitant]
  4. RAMIPRIL [Concomitant]
  5. ITRACONAZOLE [Concomitant]
  6. APREPITANT [Concomitant]
  7. COTRIM [Concomitant]
  8. MEROPENEM [Concomitant]
  9. GENTAMICIN [Concomitant]
  10. BENZYDAMINE [Concomitant]
  11. CHLORHEXIDINE GLUCONATE [Concomitant]
  12. PERINDOPRIL ERBUMINE [Concomitant]
  13. CYTARABINE [Concomitant]
     Indication: ACUTE MYELOID LEUKAEMIA
     Dosage: PATIENT HAS ALREADY HAD 36 DOSES OF 160MG
  14. DAUNORUBICIN HCL [Concomitant]
     Indication: ACUTE MYELOID LEUKAEMIA
  15. FLUDARABINE PHOSPHATE [Suspect]
     Indication: ACUTE MYELOID LEUKAEMIA
     Route: 042
     Dates: start: 20120612, end: 20120617
  16. ALLOPURINOL [Concomitant]
  17. AMOXICILLIN AND CLAVULANATE POTASSIUM [Concomitant]
  18. LENOGRASTIM [Concomitant]
  19. BISOPROLOL FUMARATE [Concomitant]
  20. PIPERACILLIN AND TAZOBACTAM [Concomitant]
  21. FILGRASTIM [Concomitant]
     Indication: ACUTE MYELOID LEUKAEMIA

REACTIONS (2)
  - MONONEUROPATHY MULTIPLEX [None]
  - DIPLOPIA [None]
